FAERS Safety Report 14900170 (Version 2)
Quarter: 2018Q2

REPORT INFORMATION
  Report Type: Spontaneous
  Country: LT (occurrence: LT)
  Receive Date: 20180516
  Receipt Date: 20180530
  Transmission Date: 20180711
  Serious: Yes (Other)
  Sender: FDA-Public Use
  Company Number: LT-ELI_LILLY_AND_COMPANY-LT201805005723

PATIENT
  Age: 35 Year
  Sex: Male
  Weight: 70 kg

DRUGS (3)
  1. ERBITUX [Suspect]
     Active Substance: CETUXIMAB
     Dosage: 420 MG, UNK
     Route: 041
     Dates: start: 20180510
  2. ERBITUX [Suspect]
     Active Substance: CETUXIMAB
     Indication: LARYNGEAL CANCER
     Dosage: 100 MG, UNKNOWN
     Route: 041
     Dates: start: 20180430
  3. ERBITUX [Suspect]
     Active Substance: CETUXIMAB
     Dosage: UNK UNK, UNKNOWN
     Route: 041
     Dates: start: 20180507

REACTIONS (4)
  - Choking [Recovering/Resolving]
  - Blood pressure decreased [Recovering/Resolving]
  - Bronchospasm [Recovering/Resolving]
  - Cytokine release syndrome [Recovering/Resolving]

NARRATIVE: CASE EVENT DATE: 20180430
